FAERS Safety Report 15350748 (Version 4)
Quarter: 2018Q4

REPORT INFORMATION
  Report Type: Report from Study
  Country: US (occurrence: US)
  Receive Date: 20180905
  Receipt Date: 20181115
  Transmission Date: 20190204
  Serious: Yes (Other)
  Sender: FDA-Public Use
  Company Number: US-GILEAD-2018-0354862

PATIENT
  Age: 61 Year
  Sex: Female

DRUGS (8)
  1. REMODULIN [Suspect]
     Active Substance: TREPROSTINIL
     Dosage: 16 NG, Q1 MINUTE
     Route: 065
  2. UPTRAVI [Concomitant]
     Active Substance: SELEXIPAG
  3. AMBRISENTAN [Suspect]
     Active Substance: AMBRISENTAN
     Indication: PULMONARY HYPERTENSION
     Dosage: 10 MG, QD
     Route: 065
     Dates: start: 20111012
  4. REMODULIN [Suspect]
     Active Substance: TREPROSTINIL
     Indication: PULMONARY HYPERTENSION
     Dosage: 41.6 NG, Q1MINUTE
     Route: 065
     Dates: start: 20180817
  5. REMODULIN [Suspect]
     Active Substance: TREPROSTINIL
     Dosage: 6 NG, Q1SECOND
     Route: 065
  6. OXYGEN. [Concomitant]
     Active Substance: OXYGEN
  7. REMODULIN [Suspect]
     Active Substance: TREPROSTINIL
     Dosage: 21 NG, Q1SECOND
     Route: 065
     Dates: start: 20180807
  8. AMBRISENTAN [Suspect]
     Active Substance: AMBRISENTAN
     Dosage: 5 MG
     Route: 065

REACTIONS (11)
  - Device dislocation [Unknown]
  - Headache [Not Recovered/Not Resolved]
  - Rheumatoid arthritis [Not Recovered/Not Resolved]
  - Pain [Recovered/Resolved]
  - Musculoskeletal stiffness [Unknown]
  - Restless legs syndrome [Unknown]
  - Malaise [Unknown]
  - Pain in extremity [Unknown]
  - Swelling [Unknown]
  - Oxygen consumption increased [Unknown]
  - Diarrhoea [Unknown]

NARRATIVE: CASE EVENT DATE: 2013
